FAERS Safety Report 5190152-0 (Version None)
Quarter: 2006Q4

REPORT INFORMATION
  Report Type: 
  Country: None (occurrence: None)
  Receive Date: 20061222
  Receipt Date: 20061213
  Transmission Date: 20070319
  Serious: Yes (Death)
  Sender: FDA-Public Use
  Company Number: FR-JNJFOC-20061203698

PATIENT
  Age: 12 Year
  Sex: Male

DRUGS (3)
  1. EPITOMAX [Suspect]
     Indication: EPILEPSY
     Route: 048
  2. URBANYL [Concomitant]
     Indication: CONVULSION PROPHYLAXIS
     Route: 065
  3. DEPAKENE [Concomitant]
     Indication: CONVULSION PROPHYLAXIS
     Route: 065

REACTIONS (2)
  - DEATH [None]
  - NEUTROPENIA [None]
